FAERS Safety Report 15187035 (Version 2)
Quarter: 2019Q1

REPORT INFORMATION
  Report Type: Report from Study
  Country: US (occurrence: US)
  Receive Date: 20180723
  Receipt Date: 20190130
  Transmission Date: 20190417
  Serious: No
  Sender: FDA-Public Use
  Company Number: US-EXELIXIS-CABO-18011963

PATIENT
  Sex: Male

DRUGS (24)
  1. CABOMETYX [Suspect]
     Active Substance: CABOZANTINIB S-MALATE
     Indication: RENAL CANCER
     Dosage: 60 MG, QD
     Route: 048
     Dates: start: 20160621
  2. ALLOPURINOL. [Concomitant]
     Active Substance: ALLOPURINOL
  3. VITAMIN B COMPLEX [Concomitant]
     Active Substance: CYANOCOBALAMIN\DEXPANTHENOL\NIACINAMIDE\PYRIDOXINE HYDROCHLORIDE\RIBOFLAVIN 5^-PHOSPHATE SODIUM\THIAMINE HYDROCHLORIDE\VITAMIN B COMPLEX
  4. FINASTERIDE. [Concomitant]
     Active Substance: FINASTERIDE
  5. L-GLUTAMINE [Concomitant]
  6. CALCITROL [Concomitant]
     Active Substance: CALCITRIOL
  7. CHLORTHALIDONE. [Concomitant]
     Active Substance: CHLORTHALIDONE
  8. LEVOTHYROXINE. [Concomitant]
     Active Substance: LEVOTHYROXINE
  9. MIRALAX [Concomitant]
     Active Substance: POLYETHYLENE GLYCOL 3350
  10. MAGNESIUM [Concomitant]
     Active Substance: MAGNESIUM
  11. POTASSIUM [Concomitant]
     Active Substance: POTASSIUM
  12. VITAMIN D3 [Concomitant]
     Active Substance: CHOLECALCIFEROL
  13. VITAMIN D [Concomitant]
     Active Substance: CHOLECALCIFEROL
  14. CABOMETYX [Suspect]
     Active Substance: CABOZANTINIB S-MALATE
     Dosage: 40 MG, QD
     Route: 048
     Dates: start: 20160929
  15. METHOCARBAMOL. [Concomitant]
     Active Substance: METHOCARBAMOL
  16. LYRICA [Concomitant]
     Active Substance: PREGABALIN
  17. COLACE [Concomitant]
     Active Substance: DOCUSATE SODIUM
  18. PREDNISONE. [Concomitant]
     Active Substance: PREDNISONE
  19. FERROUS SULFATE. [Concomitant]
     Active Substance: FERROUS SULFATE
  20. L-CARNITINE [Concomitant]
     Active Substance: LEVOCARNITINE
  21. FLOMAX [Concomitant]
     Active Substance: TAMSULOSIN HYDROCHLORIDE
  22. LASIX [Concomitant]
     Active Substance: FUROSEMIDE
  23. LEVEMIR [Concomitant]
     Active Substance: INSULIN DETEMIR
  24. MELATONIN [Concomitant]
     Active Substance: MELATONIN

REACTIONS (1)
  - Musculoskeletal discomfort [Unknown]
